FAERS Safety Report 7198928-5 (Version None)
Quarter: 2010Q4

REPORT INFORMATION
  Report Type: 
  Country: None (occurrence: None)
  Receive Date: 20101227
  Receipt Date: 20101220
  Transmission Date: 20110411
  Serious: Yes (Hospitalization)
  Sender: FDA-Public Use
  Company Number: DE-AMGEN-DEUSP2010011673

PATIENT

DRUGS (5)
  1. ENBREL FERTIGSPRITZE [Suspect]
     Indication: RHEUMATOID ARTHRITIS
     Dosage: 50 MG, WEEKLY
     Dates: start: 20080901
  2. ENBREL FERTIGSPRITZE [Suspect]
  3. CORTISONE [Concomitant]
     Dosage: 10 MG, UNK
  4. ASPIRIN [Concomitant]
     Dosage: UNK
  5. ANTIDEPRESSANTS [Concomitant]

REACTIONS (5)
  - ERYTHEMA [None]
  - HERPES ZOSTER [None]
  - SUDDEN HEARING LOSS [None]
  - SWELLING [None]
  - VERTIGO [None]
